FAERS Safety Report 17023797 (Version 1)
Quarter: 2019Q4

REPORT INFORMATION
  Report Type: Spontaneous
  Country: US (occurrence: US)
  Receive Date: 20191113
  Receipt Date: 20191113
  Transmission Date: 20200122
  Serious: No
  Sender: FDA-Public Use
  Company Number: US-ELI_LILLY_AND_COMPANY-US201910012967

PATIENT
  Sex: Female
  Weight: 49 kg

DRUGS (1)
  1. FORTEO [Suspect]
     Active Substance: TERIPARATIDE
     Indication: PRODUCT USED FOR UNKNOWN INDICATION
     Dosage: UNK UNK, UNKNOWN
     Route: 065
     Dates: start: 20191021

REACTIONS (13)
  - Injection site bruising [Unknown]
  - Injection site pain [Unknown]
  - Balance disorder [Unknown]
  - Injection site injury [Unknown]
  - Confusional state [Unknown]
  - Fat tissue decreased [Unknown]
  - Wrong technique in product usage process [Unknown]
  - Disturbance in attention [Unknown]
  - Contusion [Unknown]
  - Musculoskeletal stiffness [Unknown]
  - Injection site erythema [Unknown]
  - Memory impairment [Unknown]
  - Feeling abnormal [Unknown]
